FAERS Safety Report 15856357 (Version 2)
Quarter: 2019Q1

REPORT INFORMATION
  Report Type: Report from Study
  Country: None (occurrence: PL)
  Receive Date: 20190123
  Receipt Date: 20190206
  Transmission Date: 20190417
  Serious: Yes (Death, Hospitalization)
  Sender: FDA-Public Use
  Company Number: PL-ABBVIE-19S-129-2634986-00

PATIENT
  Age: 66 Year
  Sex: Female
  Weight: 70 kg

DRUGS (1)
  1. DUODOPA [Suspect]
     Active Substance: CARBIDOPA\LEVODOPA
     Indication: PARKINSON^S DISEASE
     Dosage: 4.30 ML/H, MD 10 ML.
     Route: 050
     Dates: start: 20180225

REACTIONS (14)
  - Protein total decreased [Unknown]
  - Depression [Not Recovered/Not Resolved]
  - Malaise [Fatal]
  - Basophil count increased [Unknown]
  - Pneumonia [Fatal]
  - Prothrombin level increased [Unknown]
  - Albumin globulin ratio increased [Unknown]
  - Device issue [Recovered/Resolved]
  - Mood altered [Unknown]
  - Vitamin B12 deficiency [Unknown]
  - Dyspnoea [Fatal]
  - Platelet distribution width increased [Unknown]
  - Cognitive disorder [Not Recovered/Not Resolved]
  - Myalgia [Fatal]

NARRATIVE: CASE EVENT DATE: 20190111
